FAERS Safety Report 20677907 (Version 1)
Quarter: 2022Q2

REPORT INFORMATION
  Report Type: Spontaneous
  Country: US (occurrence: US)
  Receive Date: 20220406
  Receipt Date: 20220406
  Transmission Date: 20220721
  Serious: No
  Sender: FDA-Public Use
  Company Number: US-GW PHARMA-202203USGW01695

PATIENT
  Age: 13 Year
  Sex: Male

DRUGS (3)
  1. EPIDIOLEX [Suspect]
     Active Substance: CANNABIDIOL
     Indication: Lennox-Gastaut syndrome
     Dosage: 200 MILLIGRAM, BID
     Route: 048
     Dates: start: 202203, end: 202203
  2. EPIDIOLEX [Suspect]
     Active Substance: CANNABIDIOL
     Indication: Status epilepticus
     Dosage: 350 MILLIGRAM, BID
     Route: 048
     Dates: start: 202203, end: 202203
  3. EPIDIOLEX [Suspect]
     Active Substance: CANNABIDIOL
     Dosage: 500 MILLIGRAM, BID
     Route: 048
     Dates: start: 2022

REACTIONS (4)
  - Fall [Unknown]
  - Head injury [Unknown]
  - Wound haemorrhage [Unknown]
  - Seizure [Unknown]

NARRATIVE: CASE EVENT DATE: 20220301
